FAERS Safety Report 7019571-4 (Version None)
Quarter: 2010Q3

REPORT INFORMATION
  Report Type: 
  Country: None (occurrence: None)
  Receive Date: 20100928
  Receipt Date: 20100928
  Transmission Date: 20110219
  Serious: Yes (Other)
  Sender: FDA-Public Use
  Company Number: None

PATIENT
  Sex: Male
  Weight: 99.7913 kg

DRUGS (1)
  1. PRISTIQ [Suspect]
     Indication: DEPRESSION
     Dosage: ONE PILL ONCE DAY PO
     Route: 048
     Dates: start: 20100901, end: 20100915

REACTIONS (4)
  - ABNORMAL DREAMS [None]
  - IRRITABILITY [None]
  - NIGHTMARE [None]
  - SUICIDAL IDEATION [None]
